FAERS Safety Report 5747544-8 (Version None)
Quarter: 2008Q2

REPORT INFORMATION
  Report Type: 
  Country: None (occurrence: None)
  Receive Date: 20080523
  Receipt Date: 20080509
  Transmission Date: 20081010
  Serious: Yes (Hospitalization)
  Sender: FDA-Public Use
  Company Number: US-ELI_LILLY_AND_COMPANY-US200804002271

PATIENT
  Sex: Female
  Weight: 43.537 kg

DRUGS (5)
  1. FORTEO [Suspect]
     Indication: OSTEOPOROSIS
     Dosage: UNK, UNK
     Dates: start: 20080206
  2. ATENOLOL [Concomitant]
  3. ASPIRIN [Concomitant]
     Indication: ARTERIAL DISORDER
     Dosage: 81 MG, UNK
  4. AVAPRO [Concomitant]
     Indication: BLOOD PRESSURE
  5. LEVOTHYROXINE SODIUM [Concomitant]
     Indication: HYPOTHYROIDISM

REACTIONS (9)
  - ANOREXIA [None]
  - BLOOD CHOLESTEROL INCREASED [None]
  - BLOOD POTASSIUM INCREASED [None]
  - BLOOD PRESSURE INCREASED [None]
  - DEHYDRATION [None]
  - EATING DISORDER [None]
  - LUNG INFECTION [None]
  - MALAISE [None]
  - WEIGHT DECREASED [None]
